FAERS Safety Report 4836285-7 (Version None)
Quarter: 2005Q4

REPORT INFORMATION
  Report Type: 
  Country: None (occurrence: None)
  Receive Date: 20051118
  Receipt Date: 20051016
  Transmission Date: 20060501
  Serious: Yes (Hospitalization)
  Sender: FDA-Public Use
  Company Number: 2005SP002483

PATIENT
  Age: 68 Year
  Sex: Female
  Weight: 52.6173 kg

DRUGS (18)
  1. LUNESTA [Suspect]
     Indication: INSOMNIA
     Dosage: 2 MG; 1X; ORAL
     Route: 048
     Dates: start: 20050501, end: 20050501
  2. PIOGLITAZONE HYDROCHLORIDE [Concomitant]
  3. ATIVAN [Concomitant]
  4. CARDIZEM [Concomitant]
  5. DOXAZOSIN [Concomitant]
  6. VITAMINS [Concomitant]
  7. CLONIDINE [Concomitant]
  8. GLUCOPHAGE [Concomitant]
  9. GLYBURIDE [Concomitant]
  10. HYDROCHLOROTHIAZIDE [Concomitant]
  11. PROPRANOLOL [Concomitant]
  12. LEXAPRO [Concomitant]
  13. MAGNESIUM OXIDE [Concomitant]
  14. NEURONTIN [Concomitant]
  15. PREVACID [Concomitant]
  16. RISPERDAL [Concomitant]
  17. SIMVASTATIN [Concomitant]
  18. AMBIEN [Concomitant]

REACTIONS (7)
  - ASTHENIA [None]
  - CONFUSIONAL STATE [None]
  - DELIRIUM [None]
  - DYSSTASIA [None]
  - HEADACHE [None]
  - MENTAL STATUS CHANGES [None]
  - THERAPY NON-RESPONDER [None]
